FAERS Safety Report 7246591-7 (Version None)
Quarter: 2011Q1

REPORT INFORMATION
  Report Type: 
  Country: None (occurrence: None)
  Receive Date: 20110127
  Receipt Date: 20110120
  Transmission Date: 20110831
  Serious: Yes (Hospitalization)
  Sender: FDA-Public Use
  Company Number: US-BIOGENIDEC-2011BI002737

PATIENT
  Age: 33 Year
  Sex: Male

DRUGS (3)
  1. AVONEX [Suspect]
     Indication: MULTIPLE SCLEROSIS
     Route: 030
     Dates: start: 20080101, end: 20080513
  2. AVONEX [Suspect]
     Route: 030
     Dates: start: 20060617, end: 20080116
  3. AVONEX [Suspect]
     Route: 030
     Dates: start: 20001218, end: 20030601

REACTIONS (2)
  - ABASIA [None]
  - PALLOR [None]
